FAERS Safety Report 14999796 (Version 2)
Quarter: 2018Q2

REPORT INFORMATION
  Report Type: Spontaneous
  Country: PT (occurrence: PT)
  Receive Date: 20180612
  Receipt Date: 20180612
  Transmission Date: 20180711
  Serious: Yes (Hospitalization, Other)
  Sender: FDA-Public Use
  Company Number: PHHY2017PT184879

PATIENT
  Age: 33 Year
  Sex: Female

DRUGS (3)
  1. ADALIMUMAB [Suspect]
     Active Substance: ADALIMUMAB
     Indication: BEHCET^S SYNDROME
     Route: 065
  2. CICLOSPORIN [Suspect]
     Active Substance: CYCLOSPORINE
     Indication: BEHCET^S SYNDROME
     Route: 065
  3. PREDNISOLONE. [Suspect]
     Active Substance: PREDNISOLONE
     Indication: BEHCET^S SYNDROME
     Dosage: UNK
     Route: 065

REACTIONS (14)
  - Tonsillitis [Unknown]
  - Pyrexia [Recovering/Resolving]
  - Lymphadenopathy [Recovering/Resolving]
  - Tonsillar hypertrophy [Recovering/Resolving]
  - C-reactive protein increased [Recovering/Resolving]
  - Tonsillitis bacterial [Recovering/Resolving]
  - Disseminated tuberculosis [Recovering/Resolving]
  - Product use in unapproved indication [Unknown]
  - Mycobacterium test positive [Recovering/Resolving]
  - Necrosis [Recovering/Resolving]
  - Mycobacterium tuberculosis complex test positive [Recovering/Resolving]
  - Tonsillar ulcer [Recovering/Resolving]
  - Pulmonary tuberculosis [Recovering/Resolving]
  - Odynophagia [Recovering/Resolving]
